FAERS Safety Report 10627848 (Version 1)
Quarter: 2014Q4

REPORT INFORMATION
  Report Type: Spontaneous
  Country: US (occurrence: US)
  Receive Date: 20141205
  Receipt Date: 20141205
  Transmission Date: 20150529
  Serious: No
  Sender: FDA-Public Use
  Company Number: US-BRISTOL-MYERS SQUIBB COMPANY-20632022

PATIENT
  Sex: Female

DRUGS (2)
  1. PRAVACHOL [Suspect]
     Active Substance: PRAVASTATIN SODIUM
     Dosage: DOSE REDUCED TO 40 MG.
  2. ATORVASTATIN+EZETIMIBE [Suspect]
     Active Substance: ATORVASTATIN\EZETIMIBE
     Dosage: 1 DF = 10-20MG.
     Route: 048
     Dates: start: 201311

REACTIONS (2)
  - Wrong technique in drug usage process [Unknown]
  - Muscle spasms [Unknown]
